FAERS Safety Report 9324315 (Version 2)
Quarter: 2013Q2

REPORT INFORMATION
  Report Type: Spontaneous
  Country: US (occurrence: US)
  Receive Date: 20130603
  Receipt Date: 20130604
  Transmission Date: 20140414
  Serious: Yes (Other)
  Sender: FDA-Public Use
  Company Number: US-PFIZER INC-2013166652

PATIENT
  Age: 61 Year
  Sex: Female
  Weight: 85.71 kg

DRUGS (5)
  1. CELEBREX [Suspect]
     Indication: OSTEOARTHRITIS
     Dosage: 200MG DAILY
  2. CELEBREX [Suspect]
     Indication: BACK DISORDER
  3. MICARDIS HCT [Concomitant]
     Indication: HYPERTENSION
     Dosage: 1 DF, UNK
  4. FOSINOPRIL SODIUM [Concomitant]
     Indication: HYPERTENSION
     Dosage: UNK
  5. RESTASIS [Concomitant]
     Indication: DRY EYE
     Dosage: 1 GTT (1 DROP IN EACH EYE), 2X/DAY

REACTIONS (3)
  - Hip fracture [Unknown]
  - Gait disturbance [Unknown]
  - Arthropathy [Unknown]
